FAERS Safety Report 5196392-9 (Version None)
Quarter: 2007Q1

REPORT INFORMATION
  Report Type: 
  Country: None (occurrence: None)
  Receive Date: 20070102
  Receipt Date: 20061222
  Transmission Date: 20070707
  Serious: Yes (Other)
  Sender: FDA-Public Use
  Company Number: CH-MERCK-0612CHE00016

PATIENT
  Age: 74 Year
  Sex: Male

DRUGS (13)
  1. ZOCOR [Suspect]
     Route: 048
     Dates: end: 20061114
  2. COLCHICINE [Suspect]
     Indication: GOUT
     Route: 048
  3. INSULIN [Concomitant]
     Route: 058
  4. AMLODIPINE BESYLATE [Concomitant]
     Route: 048
  5. COZAAR [Concomitant]
     Route: 048
  6. METOPROLOL TARTRATE [Concomitant]
     Route: 048
  7. FERROUS SULFATE [Concomitant]
     Route: 048
  8. TRYPTIZOL [Concomitant]
     Route: 048
  9. ALLOPURINOL [Concomitant]
     Route: 048
  10. PANTOPRAZOLE SODIUM [Concomitant]
     Route: 048
  11. ASPIRIN [Concomitant]
     Route: 048
  12. FUROSEMIDE [Concomitant]
     Route: 048
  13. PREDNISONE [Concomitant]
     Route: 048
     Dates: end: 20061111

REACTIONS (4)
  - BLOOD CREATINE PHOSPHOKINASE INCREASED [None]
  - DRUG INTERACTION [None]
  - MYOGLOBINAEMIA [None]
  - MYOPATHY [None]
